FAERS Safety Report 25146520 (Version 3)
Quarter: 2025Q2

REPORT INFORMATION
  Report Type: Spontaneous
  Country: TH (occurrence: TH)
  Receive Date: 20250401
  Receipt Date: 20250417
  Transmission Date: 20250717
  Serious: Yes (Hospitalization)
  Sender: IPSEN
  Company Number: TH-SERVIER-S25003947

PATIENT
  Age: 74 Year
  Sex: Male

DRUGS (1)
  1. ONIVYDE [Suspect]
     Active Substance: IRINOTECAN HYDROCHLORIDE
     Indication: Product used for unknown indication
     Route: 065
     Dates: start: 20241205

REACTIONS (2)
  - Complication associated with device [Recovered/Resolved]
  - Abdominal operation [Unknown]

NARRATIVE: CASE EVENT DATE: 20250319
